FAERS Safety Report 9364977 (Version 2)
Quarter: 2013Q3

REPORT INFORMATION
  Report Type: Spontaneous
  Country: US (occurrence: US)
  Receive Date: 20130624
  Receipt Date: 20130729
  Transmission Date: 20140515
  Serious: Yes (Hospitalization)
  Sender: FDA-Public Use
  Company Number: US-WATSON-2013-10867

PATIENT
  Sex: Female

DRUGS (9)
  1. NORCO 5/325 (WATSON LABORATORIES) [Suspect]
     Indication: MIGRAINE
     Dosage: 5/325MG
     Route: 048
     Dates: start: 2012
  2. AMPYRA [Suspect]
     Indication: GAIT DISTURBANCE
     Dosage: 10MG EVERY DAY
     Route: 048
     Dates: start: 201304
  3. PERCOCET /00446701/ [Suspect]
     Indication: MIGRAINE
     Dosage: UNK
     Route: 048
     Dates: start: 201212
  4. METFORMIN [Concomitant]
     Dosage: UNK
     Route: 065
     Dates: start: 2008
  5. TRICOR                             /00090101/ [Concomitant]
     Dosage: UNK
     Route: 065
     Dates: start: 2010
  6. SIMVASTATIN [Concomitant]
     Dosage: UNK
     Route: 065
     Dates: start: 2010
  7. ESTER C                            /00008001/ [Concomitant]
     Dosage: UNK
     Route: 065
     Dates: start: 1993
  8. VITAMIN B COMPLEX [Concomitant]
     Dosage: UNK
     Route: 065
  9. ALLERGY MEDICATION [Concomitant]
     Indication: HYPERSENSITIVITY
     Dosage: UNK
     Dates: start: 1993

REACTIONS (5)
  - Multiple sclerosis relapse [Recovered/Resolved]
  - Laryngitis [Not Recovered/Not Resolved]
  - Migraine [Recovered/Resolved]
  - Constipation [Recovered/Resolved]
  - Cough [Not Recovered/Not Resolved]
